FAERS Safety Report 7375917-9 (Version None)
Quarter: 2011Q1

REPORT INFORMATION
  Report Type: 
  Country: None (occurrence: None)
  Receive Date: 20110325
  Receipt Date: 20110317
  Transmission Date: 20110831
  Serious: Yes (Hospitalization, Disabling)
  Sender: FDA-Public Use
  Company Number: B0708181A

PATIENT
  Sex: Female
  Weight: 38 kg

DRUGS (14)
  1. TYKERB [Suspect]
     Dosage: 1000MG PER DAY
     Route: 048
     Dates: start: 20101126, end: 20101130
  2. XELODA [Suspect]
     Dosage: 2400MG PER DAY
     Route: 048
     Dates: start: 20100820, end: 20100824
  3. XELODA [Suspect]
     Dosage: 1800MG PER DAY
     Route: 048
     Dates: start: 20100830, end: 20100928
  4. XELODA [Suspect]
     Dosage: 1200MG PER DAY
     Route: 048
     Dates: start: 20101028, end: 20101110
  5. TYKERB [Suspect]
     Indication: BREAST CANCER
     Dosage: 1250MG PER DAY
     Route: 048
     Dates: start: 20100820, end: 20100824
  6. TYKERB [Suspect]
     Dosage: 1250MG PER DAY
     Route: 048
     Dates: start: 20100830, end: 20100928
  7. MS CONTIN [Concomitant]
     Indication: PAIN
     Route: 048
     Dates: end: 20101221
  8. BETAMETHASONE [Concomitant]
     Route: 048
     Dates: start: 20100805, end: 20101220
  9. TYKERB [Suspect]
     Dosage: 1250MG PER DAY
     Route: 048
     Dates: start: 20101006, end: 20101110
  10. VOGLIBOSE [Concomitant]
     Indication: DIABETES MELLITUS
     Route: 048
     Dates: end: 20101220
  11. XELODA [Suspect]
     Dosage: 1800MG PER DAY
     Route: 048
     Dates: start: 20101006, end: 20101019
  12. XELODA [Suspect]
     Dosage: 1200MG PER DAY
     Route: 048
     Dates: start: 20101126, end: 20101130
  13. TAMOXIFEN CITRATE [Concomitant]
     Indication: BREAST CANCER
     Dosage: 20MG PER DAY
     Route: 048
     Dates: end: 20101220
  14. ARGAMATE [Concomitant]
     Route: 048
     Dates: end: 20101120

REACTIONS (5)
  - PALMAR-PLANTAR ERYTHRODYSAESTHESIA SYNDROME [None]
  - MALAISE [None]
  - STOMATITIS [None]
  - PLATELET COUNT DECREASED [None]
  - DECREASED APPETITE [None]
